FAERS Safety Report 17247601 (Version 1)
Quarter: 2020Q1

REPORT INFORMATION
  Report Type: Spontaneous
  Country: US (occurrence: US)
  Receive Date: 20200107
  Receipt Date: 20200107
  Transmission Date: 20200409
  Serious: Yes (Death)
  Sender: FDA-Public Use
  Company Number: None

PATIENT
  Age: 63 Year
  Sex: Female
  Weight: 73.4 kg

DRUGS (21)
  1. DEXAMETHASONE. [Concomitant]
     Active Substance: DEXAMETHASONE
  2. FAMOTIDINE. [Concomitant]
     Active Substance: FAMOTIDINE
  3. NORCO [Concomitant]
     Active Substance: ACETAMINOPHEN\HYDROCODONE BITARTRATE
  4. LORATADINE. [Concomitant]
     Active Substance: LORATADINE
  5. GUIAFENESIN [Concomitant]
  6. TEMAZEPAM. [Concomitant]
     Active Substance: TEMAZEPAM
  7. XARELTO [Concomitant]
     Active Substance: RIVAROXABAN
  8. FISH OIL [Concomitant]
     Active Substance: FISH OIL
  9. MULTIVITAMIN [Concomitant]
     Active Substance: VITAMINS
  10. ALPRAZOLAM. [Concomitant]
     Active Substance: ALPRAZOLAM
  11. HYDROCODONE BITARTRATE AND ACETAMINOPHEN [Concomitant]
     Active Substance: ACETAMINOPHEN\HYDROCODONE BITARTRATE
  12. MORPHINE [Concomitant]
     Active Substance: MORPHINE
  13. DRONABINOL. [Concomitant]
     Active Substance: DRONABINOL
  14. NALOXONE [Concomitant]
     Active Substance: NALOXONE
  15. ONDANSETRON [Concomitant]
     Active Substance: ONDANSETRON
  16. XPOVIO [Suspect]
     Active Substance: SELINEXOR
     Indication: PLASMA CELL MYELOMA
     Dosage: ?          OTHER FREQUENCY:80MG BIW;?
     Route: 048
     Dates: start: 20191212
  17. ACYCLOVIR. [Concomitant]
     Active Substance: ACYCLOVIR
  18. ACETAMINOPHEN. [Concomitant]
     Active Substance: ACETAMINOPHEN
  19. DOCUSATE [Concomitant]
     Active Substance: DOCUSATE
  20. LORTIMIN [Concomitant]
  21. TUMS [Concomitant]
     Active Substance: CALCIUM CARBONATE

REACTIONS (1)
  - Death [None]

NARRATIVE: CASE EVENT DATE: 20200103
